FAERS Safety Report 4865903-2 (Version None)
Quarter: 2005Q4

REPORT INFORMATION
  Report Type: 
  Country: None (occurrence: None)
  Receive Date: 20051223
  Receipt Date: 20051216
  Transmission Date: 20060501
  Serious: Yes (Hospitalization)
  Sender: FDA-Public Use
  Company Number: PHHO2005GB19778

PATIENT
  Age: 20 Year
  Sex: Female

DRUGS (4)
  1. MISOPROSTOL [Concomitant]
     Indication: LABOUR INDUCTION
     Dosage: 50 UG, ONCE/SINGLE
     Route: 067
     Dates: start: 20051213, end: 20051213
  2. MISOPROSTOL [Concomitant]
     Dosage: 25 UG, ONCE/SINGLE
     Route: 067
     Dates: start: 20051213, end: 20051213
  3. BUPIVACAINE W/FENTANYL [Concomitant]
     Route: 008
  4. SYNTOCINON [Suspect]
     Indication: LABOUR INDUCTION
     Dosage: NOT REPORTED
     Route: 065

REACTIONS (2)
  - CAESAREAN SECTION [None]
  - DRUG EXPOSURE DURING PREGNANCY [None]
